FAERS Safety Report 17649795 (Version 1)
Quarter: 2020Q2

REPORT INFORMATION
  Report Type: Spontaneous
  Country: US (occurrence: US)
  Receive Date: 20200409
  Receipt Date: 20200409
  Transmission Date: 20200713
  Serious: No
  Sender: FDA-Public Use
  Company Number: US-PFIZER INC-2019113714

PATIENT
  Age: 12 Year
  Sex: Male

DRUGS (2)
  1. GENOTROPIN [Suspect]
     Active Substance: SOMATROPIN
     Indication: DYSPLASIA
     Dosage: 2.2 MG, 6 DAYS OF WEEK
  2. GENOTROPIN [Suspect]
     Active Substance: SOMATROPIN
     Indication: FACIODIGITOGENITAL DYSPLASIA
     Dosage: 2.0 MG, 6 DAYS A WEEK

REACTIONS (4)
  - Polyuria [Unknown]
  - Product use in unapproved indication [Unknown]
  - Off label use [Unknown]
  - Behaviour disorder [Unknown]

NARRATIVE: CASE EVENT DATE: 20200313
